FAERS Safety Report 13838890 (Version 1)
Quarter: 2017Q3

REPORT INFORMATION
  Report Type: Spontaneous
  Country: US (occurrence: US)
  Receive Date: 20170807
  Receipt Date: 20170807
  Transmission Date: 20171127
  Serious: No
  Sender: FDA-Public Use
  Company Number: US-PFIZER INC-2017303853

PATIENT
  Age: 86 Year
  Sex: Female

DRUGS (14)
  1. FENTANYL. [Suspect]
     Active Substance: FENTANYL
     Dosage: UNK
  2. DIGOXIN. [Suspect]
     Active Substance: DIGOXIN
     Dosage: UNK
  3. ZOLOFT [Suspect]
     Active Substance: SERTRALINE HYDROCHLORIDE
     Dosage: UNK
  4. LASIX [Suspect]
     Active Substance: FUROSEMIDE
     Dosage: UNK
  5. PLAQUENIL [Suspect]
     Active Substance: HYDROXYCHLOROQUINE SULFATE
     Dosage: UNK
  6. KETOCONAZOLE. [Suspect]
     Active Substance: KETOCONAZOLE
     Dosage: UNK
  7. CARAFATE [Suspect]
     Active Substance: SUCRALFATE
     Dosage: UNK
  8. MIRTAZAPINE. [Suspect]
     Active Substance: MIRTAZAPINE
     Dosage: UNK
  9. PROCAINE HYDROCHLORIDE [Suspect]
     Active Substance: PROCAINE HYDROCHLORIDE
     Dosage: UNK
  10. OXYCODONE-ACET [Suspect]
     Active Substance: ACETAMINOPHEN\OXYCODONE HYDROCHLORIDE
     Dosage: UNK
  11. BUMETANIDE. [Suspect]
     Active Substance: BUMETANIDE
     Dosage: UNK
  12. METOPROLOL TARTRATE. [Suspect]
     Active Substance: METOPROLOL TARTRATE
     Dosage: UNK
  13. XANAX [Suspect]
     Active Substance: ALPRAZOLAM
     Dosage: UNK
  14. ASA [Suspect]
     Active Substance: ASPIRIN
     Dosage: UNK

REACTIONS (1)
  - Drug hypersensitivity [Unknown]
